FAERS Safety Report 7101046-5 (Version None)
Quarter: 2010Q4

REPORT INFORMATION
  Report Type: 
  Country: None (occurrence: None)
  Receive Date: 20101113
  Receipt Date: 20100419
  Transmission Date: 20110411
  Serious: No
  Sender: FDA-Public Use
  Company Number: US-ALLERGAN-1005130US

PATIENT
  Sex: Female

DRUGS (3)
  1. BOTOX COSMETIC [Suspect]
     Indication: SKIN WRINKLING
     Dosage: 28 UNITS, SINGLE
     Route: 030
     Dates: start: 20100311, end: 20100311
  2. BOTOX COSMETIC [Suspect]
     Dosage: 19.6 UNITS, SINGLE
     Route: 030
     Dates: start: 20100406, end: 20100406
  3. BOTOX COSMETIC [Suspect]
     Dosage: 10 UNITS, SINGLE
     Route: 030
     Dates: start: 20100412, end: 20100412

REACTIONS (4)
  - EYELID PTOSIS [None]
  - FACIAL PARESIS [None]
  - SKIN TIGHTNESS [None]
  - VISION BLURRED [None]
